FAERS Safety Report 25184758 (Version 3)
Quarter: 2025Q2

REPORT INFORMATION
  Report Type: Report from Study
  Country: KW (occurrence: KW)
  Receive Date: 20250410
  Receipt Date: 20250521
  Transmission Date: 20250716
  Serious: Yes (Hospitalization)
  Sender: NOVARTIS
  Company Number: KW-002147023-NVSC2025KW059304

PATIENT
  Age: 59 Year
  Sex: Male

DRUGS (1)
  1. LEQVIO [Suspect]
     Active Substance: INCLISIRAN SODIUM
     Indication: Hypercholesterolaemia
     Route: 058
     Dates: start: 20241212

REACTIONS (4)
  - Liver disorder [Recovered/Resolved]
  - Abdominal distension [Recovered/Resolved]
  - Peripheral swelling [Recovered/Resolved]
  - Hepatic enzyme increased [Recovered/Resolved]

NARRATIVE: CASE EVENT DATE: 20250301
